FAERS Safety Report 9911436 (Version 1)
Quarter: 2014Q1

REPORT INFORMATION
  Report Type: Spontaneous
  Country: DE (occurrence: DE)
  Receive Date: 20140219
  Receipt Date: 20140219
  Transmission Date: 20141002
  Serious: Yes (Other)
  Sender: FDA-Public Use
  Company Number: GXKR2014DE000922

PATIENT
  Sex: 0

DRUGS (3)
  1. LAMOTRIGINE [Suspect]
     Indication: BIPOLAR DISORDER
     Dosage: 300 [MG/D (3 X 100 MG/D) ]
     Route: 064
     Dates: start: 20120806, end: 20130509
  2. CITALOPRAM [Suspect]
     Indication: DEPRESSION
     Dosage: 30 [MG/D ]
     Route: 064
     Dates: start: 20120806, end: 20130509
  3. FOLSAEURE [Concomitant]
     Indication: PROPHYLAXIS OF NEURAL TUBE DEFECT
     Dosage: 0.4 [MG/D ] (GW 6 TO 12)
     Route: 064

REACTIONS (4)
  - Somnolence [Recovered/Resolved]
  - Feeding disorder neonatal [Recovered/Resolved]
  - Neonatal infection [Recovered/Resolved]
  - Foetal exposure during pregnancy [Unknown]
